FAERS Safety Report 19185242 (Version 1)
Quarter: 2021Q2

REPORT INFORMATION
  Report Type: Spontaneous
  Country: NL (occurrence: NL)
  Receive Date: 20210427
  Receipt Date: 20210427
  Transmission Date: 20210717
  Serious: Yes (Hospitalization)
  Sender: FDA-Public Use
  Company Number: NL-TEVA-2021-NL-1904836

PATIENT
  Sex: Male
  Weight: 100 kg

DRUGS (2)
  1. PARACETAMOL TABLET  500MG / BRAND NAME NOT SPECIFIED [Concomitant]
     Dosage: 500 MG (MILLIGRAM) , THERAPY START DATE AND END DATE : ASKED BUT UNKNOWN
  2. OMEPRAZOL CAPSULE MSR 40MG / BRAND NAME NOT SPECIFIED [Suspect]
     Active Substance: OMEPRAZOLE
     Indication: DYSPEPSIA
     Dosage: 40 MILLIGRAM DAILY;
     Dates: start: 201604, end: 20190815

REACTIONS (2)
  - Dysuria [Recovered/Resolved]
  - Bladder pain [Recovered/Resolved]
